FAERS Safety Report 19492532 (Version 1)
Quarter: 2021Q3

REPORT INFORMATION
  Report Type: Spontaneous
  Country: US (occurrence: US)
  Receive Date: 20210705
  Receipt Date: 20210705
  Transmission Date: 20211014
  Serious: Yes (Other)
  Sender: FDA-Public Use
  Company Number: US-AIZANT-2021AIZANTLIT00034

PATIENT
  Age: 44 Year
  Sex: Female

DRUGS (6)
  1. ALBUTEROL. [Suspect]
     Active Substance: ALBUTEROL
     Indication: THROAT TIGHTNESS
  2. ALBUTEROL. [Suspect]
     Active Substance: ALBUTEROL
     Indication: PRURITUS
     Route: 065
  3. DIPHENHYDRAMINE. [Suspect]
     Active Substance: DIPHENHYDRAMINE
     Indication: PRURITUS
     Route: 065
  4. DIPHENHYDRAMINE. [Suspect]
     Active Substance: DIPHENHYDRAMINE
     Indication: THROAT TIGHTNESS
  5. ALBUTEROL. [Suspect]
     Active Substance: ALBUTEROL
     Indication: SWOLLEN TONGUE
  6. DIPHENHYDRAMINE. [Suspect]
     Active Substance: DIPHENHYDRAMINE
     Indication: SWOLLEN TONGUE

REACTIONS (1)
  - Drug ineffective [Unknown]
